FAERS Safety Report 9044228 (Version 1)
Quarter: 2013Q1

REPORT INFORMATION
  Report Type: Spontaneous
  Country: IT (occurrence: IT)
  Receive Date: 20130130
  Receipt Date: 20130130
  Transmission Date: 20140127
  Serious: Yes (Hospitalization, Other)
  Sender: FDA-Public Use
  Company Number: IT-BRISTOL-MYERS SQUIBB COMPANY-17311457

PATIENT
  Age: 80 Year
  Sex: Male

DRUGS (4)
  1. COUMADIN TABS 5 MG [Suspect]
     Indication: PROPHYLAXIS
     Dosage: 1 DF:1 UNIT
     Route: 048
     Dates: start: 20090101, end: 20121229
  2. ALFUZOSIN HCL [Concomitant]
     Route: 048
  3. BISOPROLOL HEMIFUMARATE [Concomitant]
     Route: 048
  4. LASIX [Concomitant]
     Dosage: LASIX 25MG TABS
     Route: 048

REACTIONS (2)
  - Anaemia [Recovered/Resolved]
  - Hypertensive encephalopathy [Unknown]
